FAERS Safety Report 10204609 (Version 2)
Quarter: 2014Q3

REPORT INFORMATION
  Report Type: Spontaneous
  Country: US (occurrence: US)
  Receive Date: 20140529
  Receipt Date: 20140910
  Transmission Date: 20150326
  Serious: Yes (Death, Hospitalization)
  Sender: FDA-Public Use
  Company Number: US-FRI-1000067719

PATIENT
  Age: 79 Year
  Sex: Male
  Weight: 62.3 kg

DRUGS (8)
  1. IMODIUM [Concomitant]
     Active Substance: LOPERAMIDE HYDROCHLORIDE
     Indication: DIARRHOEA
     Dosage: 100 MG
     Dates: start: 20131213
  2. ACIDOPHILUS [Concomitant]
     Active Substance: LACTOBACILLUS ACIDOPHILUS
     Indication: NUTRITIONAL SUPPLEMENTATION
     Dosage: 1 CAPSULE
     Dates: start: 2011
  3. PANTOPRAZOLE [Concomitant]
     Active Substance: PANTOPRAZOLE SODIUM
     Indication: GASTROOESOPHAGEAL REFLUX DISEASE
     Dosage: 40 MG
  4. PYRIDOXINE [Concomitant]
     Active Substance: PYRIDOXINE
     Indication: VITAMIN B COMPLEX DEFICIENCY
     Dosage: 250 MG
  5. DALIRESP [Suspect]
     Active Substance: ROFLUMILAST
     Indication: B-CELL LYMPHOMA
     Dosage: 500 MCG
     Route: 048
     Dates: start: 20140128, end: 20140224
  6. BACTRIM DS [Concomitant]
     Active Substance: SULFAMETHOXAZOLE\TRIMETHOPRIM
     Indication: PROPHYLAXIS
     Dosage: 1 TABLET
     Dates: start: 20131213
  7. LOVASTATIN. [Concomitant]
     Active Substance: LOVASTATIN
     Indication: BLOOD CHOLESTEROL INCREASED
     Dosage: 20 MG
  8. ALLOPURINOL. [Concomitant]
     Active Substance: ALLOPURINOL
     Indication: PROPHYLAXIS
     Dosage: 300 MG
     Dates: start: 20140127

REACTIONS (5)
  - Renal failure acute [Unknown]
  - Off label use [Recovered/Resolved]
  - B-cell lymphoma [Fatal]
  - Hypotension [Unknown]
  - Atrial fibrillation [Unknown]

NARRATIVE: CASE EVENT DATE: 20140128
